FAERS Safety Report 5213792-9 (Version None)
Quarter: 2007Q1

REPORT INFORMATION
  Report Type: 
  Country: None (occurrence: None)
  Receive Date: 20070119
  Receipt Date: 20070109
  Transmission Date: 20070707
  Serious: Yes (Death, Other)
  Sender: FDA-Public Use
  Company Number: US-PFIZER INC-2006080203

PATIENT
  Sex: Female

DRUGS (11)
  1. NEURONTIN [Suspect]
     Indication: BACK PAIN
     Route: 048
  2. FLEXERIL [Concomitant]
     Route: 048
  3. RESTORIL [Concomitant]
     Route: 048
     Dates: start: 20030428
  4. ELAVIL [Concomitant]
     Route: 048
     Dates: start: 20030428
  5. OXYIR [Concomitant]
     Route: 048
  6. DURAGESIC-100 [Concomitant]
     Route: 062
  7. ALL OTHER THERAPEUTIC PRODUCTS [Concomitant]
  8. PREVACID [Concomitant]
  9. MORPHINE SULFATE [Concomitant]
  10. NAPROXEN [Concomitant]
     Dates: start: 20030419
  11. HYDROCODONE BITARTRATE + ACETAMINOPHEN [Concomitant]

REACTIONS (3)
  - ANXIETY [None]
  - COMPLETED SUICIDE [None]
  - SUICIDAL IDEATION [None]
